FAERS Safety Report 6548223-X (Version None)
Quarter: 2010Q1

REPORT INFORMATION
  Report Type: 
  Country: None (occurrence: None)
  Receive Date: 20100124
  Receipt Date: 20090406
  Transmission Date: 20100710
  Serious: No
  Sender: FDA-Public Use
  Company Number: US-ALLERGAN-0903431US

PATIENT
  Age: 61 Year
  Sex: Female

DRUGS (6)
  1. RESTASIS [Suspect]
     Indication: DRY EYE
     Dosage: 1 GTT, BID
     Route: 047
     Dates: start: 20071201
  2. RESTASIS [Suspect]
     Dosage: 1 GTT, BID
     Route: 047
     Dates: end: 20090101
  3. SUDAFED 12 HOUR [Concomitant]
  4. ESTRACE [Concomitant]
  5. MULTI-VITAMIN [Concomitant]
  6. PROTOPIX [Concomitant]

REACTIONS (3)
  - DRY EYE [None]
  - EPISTAXIS [None]
  - SCAB [None]
